FAERS Safety Report 16704985 (Version 1)
Quarter: 2019Q3

REPORT INFORMATION
  Report Type: Spontaneous
  Country: US (occurrence: US)
  Receive Date: 20190814
  Receipt Date: 20190814
  Transmission Date: 20191004
  Serious: Yes (Other)
  Sender: FDA-Public Use
  Company Number: US-BEH-2019105565

PATIENT
  Age: 62 Year
  Sex: Male

DRUGS (3)
  1. HIZENTRA [Suspect]
     Active Substance: HUMAN IMMUNOGLOBULIN G
     Indication: IMMUNODEFICIENCY COMMON VARIABLE
     Dosage: 12 GRAM, QW
     Route: 058
     Dates: start: 20190418
  2. HIZENTRA [Suspect]
     Active Substance: HUMAN IMMUNOGLOBULIN G
     Dosage: 12 GRAM, TOT
     Route: 058
     Dates: start: 20190418, end: 20190418
  3. HIZENTRA [Suspect]
     Active Substance: HUMAN IMMUNOGLOBULIN G
     Dosage: 12 GRAM, TOT
     Route: 058
     Dates: start: 20190425, end: 20190425

REACTIONS (6)
  - Back pain [Unknown]
  - Renal pain [Unknown]
  - Renal pain [Unknown]
  - Abdominal pain upper [Unknown]
  - Abdominal pain upper [Unknown]
  - Back pain [Unknown]

NARRATIVE: CASE EVENT DATE: 20190418
